FAERS Safety Report 4804476-7 (Version None)
Quarter: 2005Q4

REPORT INFORMATION
  Report Type: 
  Country: None (occurrence: None)
  Receive Date: 20051017
  Receipt Date: 20051004
  Transmission Date: 20060501
  Serious: Yes (Disabling, Other)
  Sender: FDA-Public Use
  Company Number: 2005122971

PATIENT
  Age: 71 Year
  Sex: Male
  Weight: 32.2 kg

DRUGS (1)
  1. AMLODIPINE [Suspect]
     Indication: HYPERTENSION
     Dosage: 5 MG (5 MG, 1 IN 1 D), ORAL
     Route: 048
     Dates: start: 19980101, end: 20050101

REACTIONS (2)
  - GAMMOPATHY [None]
  - NEUROPATHY PERIPHERAL [None]
